FAERS Safety Report 8808816 (Version 1)
Quarter: 2012Q4

REPORT INFORMATION
  Report Type: Spontaneous
  Country: GB (occurrence: None)
  Receive Date: 20120920
  Receipt Date: 20120920
  Transmission Date: 20130627
  Serious: Yes (Hospitalization)
  Sender: FDA-Public Use
  Company Number: THQ2012A08189

PATIENT
  Age: 91 Year
  Sex: Female

DRUGS (21)
  1. LANSOPRAZOLE [Suspect]
     Indication: DRUG USE FOR UNKNOWN INDICATION
     Route: 048
  2. LANSOPRAZOLE [Suspect]
     Indication: DRUG USE FOR UNKNOWN INDICATION
  3. METRONIDAZOLE [Suspect]
     Dates: start: 20110322, end: 20110329
  4. METRONIDAZOLE [Suspect]
     Route: 048
  5. PHENOXYMETHYLPENICILLIN [Suspect]
     Dates: start: 20101011, end: 20101018
  6. PHENOXYMETHYLPENICILLIN [Suspect]
     Route: 048
  7. FLUCLOXACILLIN [Suspect]
     Dates: start: 2010, end: 2010
  8. FLUCLOXACILLIN [Suspect]
     Dates: start: 20101221, end: 20101228
  9. FLUCLOXACILLIN [Suspect]
     Route: 048
  10. FLUCLOXACILLIN [Suspect]
     Dates: end: 20111018
  11. FLUCLOXACILLIN [Suspect]
     Route: 048
  12. FLUCLOXACILLIN [Suspect]
  13. FLUCLOXACILLIN [Suspect]
  14. TRIMETHOPRIM [Suspect]
     Dates: start: 20110104, end: 20110110
  15. TRIMETHOPRIM [Suspect]
     Route: 048
  16. FUROSEMIDE [Concomitant]
  17. LISINOPRIL [Concomitant]
  18. ASPIRIN (ACETYLSALICYLIC ACID) [Concomitant]
  19. DALTEPARIN [Concomitant]
  20. SPIRONOLACTONE [Concomitant]
  21. SANDO K (POTASSIUM CHLORIDE) [Concomitant]

REACTIONS (2)
  - Clostridial infection [None]
  - Diarrhoea [None]
